FAERS Safety Report 12345291 (Version 1)
Quarter: 2016Q2

REPORT INFORMATION
  Report Type: Spontaneous
  Country: US (occurrence: US)
  Receive Date: 20160507
  Receipt Date: 20160507
  Transmission Date: 20160815
  Serious: No
  Sender: FDA-Public Use
  Company Number: US-BIOGEN-2016BI00203104

PATIENT
  Sex: Female

DRUGS (1)
  1. TECFIDERA [Suspect]
     Active Substance: DIMETHYL FUMARATE
     Indication: MULTIPLE SCLEROSIS
     Route: 065
     Dates: start: 20151106

REACTIONS (5)
  - Pain in extremity [Unknown]
  - Impaired self-care [Not Recovered/Not Resolved]
  - Asthenia [Unknown]
  - General symptom [Unknown]
  - Paraparesis [Not Recovered/Not Resolved]
